FAERS Safety Report 12825892 (Version 1)
Quarter: 2016Q4

REPORT INFORMATION
  Report Type: Spontaneous
  Country: US (occurrence: US)
  Receive Date: 20161007
  Receipt Date: 20161007
  Transmission Date: 20170207
  Serious: No
  Sender: FDA-Public Use
  Company Number: US-WATSON-2015-19110

PATIENT
  Sex: Female

DRUGS (2)
  1. OXYCODONE [Concomitant]
     Active Substance: OXYCODONE
     Indication: BREAKTHROUGH PAIN
     Dosage: 45 MG, PRN
     Route: 048
  2. FENTANYL-50 (WATSON LABORATORIES) [Suspect]
     Active Substance: FENTANYL
     Indication: PAIN MANAGEMENT
     Dosage: 50 MCG, CHANGE PATCH EVERY 2-3 DAYS
     Route: 062

REACTIONS (6)
  - Dizziness [Recovered/Resolved]
  - Respiratory rate decreased [Recovered/Resolved]
  - Drug ineffective [Unknown]
  - Heart rate decreased [Recovered/Resolved]
  - Withdrawal syndrome [Recovered/Resolved]
  - Overdose [Recovered/Resolved]

NARRATIVE: CASE EVENT DATE: 20150903
